FAERS Safety Report 6944995-0 (Version None)
Quarter: 2010Q3

REPORT INFORMATION
  Report Type: 
  Country: None (occurrence: None)
  Receive Date: 20100827
  Receipt Date: 20100817
  Transmission Date: 20110219
  Serious: Yes (Disabling, Other)
  Sender: FDA-Public Use
  Company Number: FR-PFIZER INC-2010086339

PATIENT
  Age: 56 Year
  Sex: Male

DRUGS (4)
  1. LYRICA [Suspect]
     Indication: HYPERAESTHESIA
     Dosage: 25 MG PER DAY
     Route: 048
     Dates: start: 20100601, end: 20100607
  2. LYRICA [Suspect]
     Dosage: 25 MG, 2 CAPSULES A DAY
     Dates: start: 20100609, end: 20100609
  3. KARDEGIC [Suspect]
     Dosage: 300 MG A DAY
     Route: 048
     Dates: start: 20100525, end: 20100609
  4. ZELITREX [Concomitant]
     Dosage: UNK

REACTIONS (3)
  - HYPERAESTHESIA [None]
  - RASH PAPULAR [None]
  - TOXIC SKIN ERUPTION [None]
